FAERS Safety Report 25596332 (Version 1)
Quarter: 2025Q3

REPORT INFORMATION
  Report Type: Spontaneous
  Country: MX (occurrence: MX)
  Receive Date: 20250723
  Receipt Date: 20250723
  Transmission Date: 20251020
  Serious: Yes (Other)
  Sender: GALPHARM INTERNATIONAL
  Company Number: MX-PERRIGO-25MX008904

PATIENT
  Sex: Female

DRUGS (1)
  1. ULIPRISTAL ACETATE [Suspect]
     Active Substance: ULIPRISTAL ACETATE
     Indication: Product used for unknown indication
     Route: 065

REACTIONS (1)
  - Diarrhoea haemorrhagic [Unknown]
